FAERS Safety Report 16465636 (Version 1)
Quarter: 2019Q2

REPORT INFORMATION
  Report Type: Spontaneous
  Country: US (occurrence: US)
  Receive Date: 20190621
  Receipt Date: 20190621
  Transmission Date: 20190711
  Serious: No
  Sender: FDA-Public Use
  Company Number: US-ANIPHARMA-2018-US-021185

PATIENT
  Age: 70 Year
  Sex: Female
  Weight: 95 kg

DRUGS (5)
  1. INCRUSE ELLIPTA [Suspect]
     Active Substance: UMECLIDINIUM BROMIDE
     Dates: start: 20180320
  2. FASENRA [Suspect]
     Active Substance: BENRALIZUMAB
     Dosage: 30 MG
     Route: 058
     Dates: start: 20181101
  3. LISINOPRIL. [Suspect]
     Active Substance: LISINOPRIL
  4. ATACAND [Suspect]
     Active Substance: CANDESARTAN CILEXETIL
     Indication: PRODUCT USED FOR UNKNOWN INDICATION
  5. BREO ELLIPTA [Suspect]
     Active Substance: FLUTICASONE FUROATE\VILANTEROL TRIFENATATE
     Dosage: 1 PUFF EVERY DAY
     Dates: start: 20180320

REACTIONS (1)
  - Hypersensitivity [Unknown]
